FAERS Safety Report 13093651 (Version 1)
Quarter: 2017Q1

REPORT INFORMATION
  Report Type: Spontaneous
  Country: US (occurrence: US)
  Receive Date: 20170106
  Receipt Date: 20170106
  Transmission Date: 20170428
  Serious: Yes (Hospitalization)
  Sender: FDA-Public Use
  Company Number: US-SAOL THERAPEUTICS-2016SAO01331

PATIENT
  Sex: Male

DRUGS (2)
  1. LIORESAL [Suspect]
     Active Substance: BACLOFEN
     Dosage: 203.7 ?G, \DAY
     Route: 037
     Dates: start: 20161228
  2. LIORESAL [Suspect]
     Active Substance: BACLOFEN
     Dosage: 184.7 ?G, \DAY
     Route: 037
     Dates: start: 20160913, end: 20161228

REACTIONS (3)
  - Pruritus [Not Recovered/Not Resolved]
  - Muscle spasticity [Not Recovered/Not Resolved]
  - Pain [Not Recovered/Not Resolved]
